FAERS Safety Report 8846963 (Version 1)
Quarter: 2012Q4

REPORT INFORMATION
  Report Type: Report from Study
  Country: CA (occurrence: CA)
  Receive Date: 20121018
  Receipt Date: 20121018
  Transmission Date: 20130627
  Serious: Yes (Other)
  Sender: FDA-Public Use
  Company Number: CA-JNJFOC-20121005262

PATIENT
  Sex: Female
  Weight: 125 kg

DRUGS (3)
  1. REMICADE [Suspect]
     Indication: CROHN^S DISEASE
     Route: 042
     Dates: start: 2008
  2. IMURAN [Concomitant]
     Route: 065
  3. ENTOCORT [Concomitant]
     Route: 065

REACTIONS (1)
  - Scleritis [Unknown]
